FAERS Safety Report 6094874-9 (Version None)
Quarter: 2009Q1

REPORT INFORMATION
  Report Type: 
  Country: None (occurrence: None)
  Receive Date: 20090227
  Receipt Date: 20090219
  Transmission Date: 20090719
  Serious: Yes (Death, Hospitalization)
  Sender: FDA-Public Use
  Company Number: JP-JNJFOC-20090204690

PATIENT
  Sex: Female

DRUGS (19)
  1. RISPERDAL [Suspect]
     Route: 048
  2. RISPERDAL [Suspect]
     Route: 048
  3. RISPERDAL [Suspect]
     Route: 048
  4. RISPERDAL [Suspect]
     Route: 048
  5. RISPERDAL [Suspect]
     Indication: SCHIZOPHRENIA, PARANOID TYPE
     Route: 048
  6. RISPERIDONE [Suspect]
     Indication: SCHIZOPHRENIA, PARANOID TYPE
     Route: 048
  7. ASPIRIN [Suspect]
     Indication: DRUG USE FOR UNKNOWN INDICATION
  8. U-PAN [Concomitant]
     Route: 048
  9. U-PAN [Concomitant]
     Route: 048
  10. U-PAN [Concomitant]
     Indication: SCHIZOPHRENIA, PARANOID TYPE
     Route: 048
  11. LENDORMIN [Concomitant]
     Indication: SCHIZOPHRENIA, PARANOID TYPE
     Route: 048
  12. SELBEX [Concomitant]
     Indication: ABDOMINAL PAIN LOWER
     Route: 048
  13. GASMOTIN [Concomitant]
     Indication: ABDOMINAL PAIN LOWER
     Route: 048
  14. SENNOSIDE [Concomitant]
     Indication: CONSTIPATION
     Route: 048
  15. GASTER [Concomitant]
     Indication: ABDOMINAL PAIN LOWER
     Route: 048
  16. BUSCOPAN [Concomitant]
     Indication: ABDOMINAL PAIN
     Route: 048
  17. CLOSTRIDIUM BUTYRICUM [Concomitant]
     Indication: ABDOMINAL PAIN
     Route: 048
  18. LAXOBERON [Concomitant]
     Route: 048
  19. FLUNITRAZEPAM [Concomitant]
     Indication: SCHIZOPHRENIA, PARANOID TYPE
     Route: 048

REACTIONS (2)
  - COMPLETED SUICIDE [None]
  - OVERDOSE [None]
